FAERS Safety Report 5925946-4 (Version None)
Quarter: 2008Q4

REPORT INFORMATION
  Report Type: 
  Country: None (occurrence: None)
  Receive Date: 20081021
  Receipt Date: 20081015
  Transmission Date: 20090506
  Serious: No
  Sender: FDA-Public Use
  Company Number: US-B.I. PHARMACEUTICALS,INC./RIDGEFIELD-2008-BP-15925BP

PATIENT
  Age: 45 Year
  Sex: Female

DRUGS (12)
  1. SPIRIVA [Suspect]
     Indication: CHRONIC OBSTRUCTIVE PULMONARY DISEASE
     Route: 055
  2. PEPCID [Concomitant]
     Indication: HYPERSENSITIVITY
  3. CLARITIN [Concomitant]
     Indication: HYPERSENSITIVITY
  4. CALCIUM WITH VITAMIN D [Concomitant]
     Indication: OSTEOPOROSIS
  5. ABILIFY [Concomitant]
     Indication: BIPOLAR DISORDER
  6. LAMOTRIGINE [Concomitant]
     Indication: SCHIZOAFFECTIVE DISORDER
  7. BOTOX [Concomitant]
     Indication: MIGRAINE
  8. ZYPREXA [Concomitant]
  9. ATIVAN [Concomitant]
  10. SYNTHROID [Concomitant]
     Indication: HYPOTHYROIDISM
  11. ZOCOR [Concomitant]
     Indication: BLOOD CHOLESTEROL INCREASED
  12. BENTYL [Concomitant]
     Indication: IRRITABLE BOWEL SYNDROME

REACTIONS (1)
  - DRUG INEFFECTIVE [None]
